FAERS Safety Report 24680388 (Version 1)
Quarter: 2024Q4

REPORT INFORMATION
  Report Type: Spontaneous
  Country: US (occurrence: US)
  Receive Date: 20241129
  Receipt Date: 20241129
  Transmission Date: 20250115
  Serious: No
  Sender: BRACCO
  Company Number: US-BRACCO-2024US04870

PATIENT
  Age: 60 Year
  Sex: Female

DRUGS (3)
  1. LUMASON [Suspect]
     Active Substance: SULFUR HEXAFLUORIDE
     Indication: Liver ablation
     Dosage: UNDER THE PROPER DOSING OF 2.4 CC^S GIVEN TWICE
     Dates: start: 20240717, end: 20240717
  2. LUMASON [Suspect]
     Active Substance: SULFUR HEXAFLUORIDE
     Indication: Liver ablation
     Dosage: UNDER THE PROPER DOSING OF 2.4 CC^S GIVEN TWICE
     Dates: start: 20240717, end: 20240717
  3. LUMASON [Suspect]
     Active Substance: SULFUR HEXAFLUORIDE
     Indication: Liver ablation
     Dosage: UNDER THE PROPER DOSING OF 2.4 CC^S GIVEN TWICE
     Dates: start: 20240717, end: 20240717

REACTIONS (3)
  - Drug ineffective [Unknown]
  - Product physical issue [Unknown]
  - No adverse event [Unknown]

NARRATIVE: CASE EVENT DATE: 20240717
